FAERS Safety Report 13709741 (Version 1)
Quarter: 2017Q3

REPORT INFORMATION
  Report Type: Report from Study
  Country: ES (occurrence: ES)
  Receive Date: 20170703
  Receipt Date: 20170703
  Transmission Date: 20171127
  Serious: Yes (Life-Threatening, Hospitalization)
  Sender: FDA-Public Use
  Company Number: ES-BAUSCH-BL-2017-019859

PATIENT
  Age: 54 Year
  Sex: Male

DRUGS (16)
  1. EUTIROX [Concomitant]
     Active Substance: LEVOTHYROXINE SODIUM
     Indication: PRODUCT USED FOR UNKNOWN INDICATION
     Route: 048
     Dates: start: 20110101
  2. OMEPRAZOL [Concomitant]
     Active Substance: OMEPRAZOLE
     Indication: PRODUCT USED FOR UNKNOWN INDICATION
     Route: 048
     Dates: start: 20151011, end: 20160830
  3. LANTUS [Concomitant]
     Active Substance: INSULIN GLARGINE
     Indication: PRODUCT USED FOR UNKNOWN INDICATION
     Route: 058
     Dates: start: 20151211
  4. LEVEMIR [Concomitant]
     Active Substance: INSULIN DETEMIR
     Indication: PRODUCT USED FOR UNKNOWN INDICATION
     Route: 058
     Dates: start: 20151211
  5. ADIRO [Concomitant]
     Active Substance: ASPIRIN
     Indication: PRODUCT USED FOR UNKNOWN INDICATION
     Route: 048
     Dates: start: 20110101
  6. METHOTREXATE. [Suspect]
     Active Substance: METHOTREXATE
     Indication: MYCOSIS FUNGOIDES
     Dosage: 890 MG FOLLOWED BY PC 24 HOURS OF 8900 MG AT 5
     Route: 065
     Dates: start: 20160805, end: 20160806
  7. HUMALOG [Concomitant]
     Active Substance: INSULIN LISPRO
     Indication: PRODUCT USED FOR UNKNOWN INDICATION
     Dosage: 100 U/ML
     Route: 058
     Dates: start: 20151211
  8. VALSARTAN. [Concomitant]
     Active Substance: VALSARTAN
     Indication: PRODUCT USED FOR UNKNOWN INDICATION
     Route: 048
     Dates: start: 20110101
  9. MABTHERA [Suspect]
     Active Substance: RITUXIMAB
     Indication: MYCOSIS FUNGOIDES
     Route: 042
     Dates: start: 20160311, end: 20160624
  10. CYCLOPHOSPHAMIDE. [Suspect]
     Active Substance: CYCLOPHOSPHAMIDE
     Indication: MYCOSIS FUNGOIDES
     Route: 042
     Dates: start: 20160311, end: 20160624
  11. ADRIAMYCIN [Suspect]
     Active Substance: DOXORUBICIN HYDROCHLORIDE
     Indication: MYCOSIS FUNGOIDES
     Route: 042
     Dates: start: 20160311, end: 20160624
  12. TARGRETIN [Suspect]
     Active Substance: BEXAROTENE
     Indication: MYCOSIS FUNGOIDES
     Route: 048
     Dates: start: 20151011, end: 20160830
  13. PREDNISONE. [Concomitant]
     Active Substance: PREDNISONE
     Indication: PRODUCT USED FOR UNKNOWN INDICATION
  14. SEPTRIN [Concomitant]
     Active Substance: SULFAMETHOXAZOLE\TRIMETHOPRIM
     Indication: PRODUCT USED FOR UNKNOWN INDICATION
     Dosage: 80/400MG
     Route: 048
     Dates: start: 20151011
  15. VINCRISTINE [Suspect]
     Active Substance: VINCRISTINE
     Indication: MYCOSIS FUNGOIDES
     Route: 042
     Dates: start: 20160311, end: 20160624
  16. ESPIRONOLACTONE [Concomitant]
     Indication: PRODUCT USED FOR UNKNOWN INDICATION
     Route: 048
     Dates: start: 20160302, end: 20160830

REACTIONS (4)
  - Left ventricular dysfunction [Unknown]
  - Pulmonary oedema [Recovered/Resolved]
  - Mononeuritis [None]
  - Paresis cranial nerve [None]

NARRATIVE: CASE EVENT DATE: 20160830
